FAERS Safety Report 11253281 (Version 1)
Quarter: 2015Q3

REPORT INFORMATION
  Report Type: Spontaneous
  Country: US (occurrence: US)
  Receive Date: 20150709
  Receipt Date: 20150709
  Transmission Date: 20151125
  Serious: No
  Sender: FDA-Public Use
  Company Number: US-TEVA-539966USA

PATIENT
  Sex: Female

DRUGS (1)
  1. VENLAFAXINE [Suspect]
     Active Substance: VENLAFAXINE HYDROCHLORIDE
     Indication: MAJOR DEPRESSION
     Dosage: 150 MILLIGRAM DAILY;
     Dates: start: 201310

REACTIONS (7)
  - Dizziness [Unknown]
  - Hyperhidrosis [Unknown]
  - Nausea [Unknown]
  - Medication residue present [Unknown]
  - Drug withdrawal syndrome [Unknown]
  - Influenza like illness [Unknown]
  - Vomiting [Unknown]
